FAERS Safety Report 7058056-6 (Version None)
Quarter: 2010Q4

REPORT INFORMATION
  Report Type: 
  Country: None (occurrence: None)
  Receive Date: 20101009
  Receipt Date: 20101009
  Transmission Date: 20110411
  Serious: Yes (Life-Threatening, Disabling)
  Sender: FDA-Public Use
  Company Number: None

PATIENT
  Age: 73 Year
  Sex: Male
  Weight: 86.1834 kg

DRUGS (2)
  1. HYALURONIDASE [Suspect]
     Indication: LOCAL ANAESTHESIA
     Dosage: 80 UNITS ADJUNCT TO LOCAL OPTHALMIC ONCE
     Route: 047
     Dates: start: 20100805, end: 20100805
  2. CARBOCAINE [Concomitant]

REACTIONS (2)
  - HYPERSENSITIVITY [None]
  - SURGICAL PROCEDURE REPEATED [None]
